FAERS Safety Report 4443920-4 (Version None)
Quarter: 2004Q3

REPORT INFORMATION
  Report Type: 
  Country: None (occurrence: None)
  Receive Date: 20040729
  Receipt Date: 20031021
  Transmission Date: 20050211
  Serious: Yes (Hospitalization)
  Sender: FDA-Public Use
  Company Number: NSADSS2003019998

PATIENT
  Age: 97 Year
  Weight: 61.6892 kg

DRUGS (9)
  1. RISPERDAL [Suspect]
     Indication: PSYCHOTIC DISORDER
     Dosage: 0.5 MG, 1 IN 24 HOUR, ORAL
     Route: 048
  2. HCTZ-RESERPINE (HYDROCHLOROTHIAZIDE) [Concomitant]
  3. NORVASC [Concomitant]
  4. ATENOLOL [Concomitant]
  5. NITRO (GLYCERYL TRINITRATE) [Concomitant]
  6. FAMOTIDINE [Concomitant]
  7. AMITRIPTYLINE HCL [Concomitant]
  8. SALSALATE [Concomitant]
  9. CITRICEL (ALL OTHER THERAPEUTIC PRODUCTS) [Concomitant]

REACTIONS (1)
  - TRANSIENT ISCHAEMIC ATTACK [None]
